FAERS Safety Report 9249429 (Version 2)
Quarter: 2013Q2

REPORT INFORMATION
  Report Type: Spontaneous
  Country: US (occurrence: US)
  Receive Date: 20130423
  Receipt Date: 20130503
  Transmission Date: 20140414
  Serious: Yes (Death, Hospitalization, Congenital Anomaly)
  Sender: FDA-Public Use
  Company Number: US-GLAXOSMITHKLINE-A1020781A

PATIENT
  Age: 0 Year
  Sex: Female
  Weight: .6 kg

DRUGS (3)
  1. PAXIL [Suspect]
     Indication: PRODUCT USED FOR UNKNOWN INDICATION
     Dosage: 20MG PER DAY
     Route: 064
     Dates: start: 199907
  2. UNASYN [Concomitant]
  3. ALBUTEROL [Concomitant]

REACTIONS (9)
  - Death [Fatal]
  - Atrial septal defect [Unknown]
  - Anal atresia [Unknown]
  - Cleft palate [Unknown]
  - Renal fusion anomaly [Unknown]
  - Coarctation of the aorta [Unknown]
  - Patent ductus arteriosus [Unknown]
  - Bicuspid aortic valve [Unknown]
  - Foetal exposure during pregnancy [Unknown]
